FAERS Safety Report 8475006-6 (Version None)
Quarter: 2012Q2

REPORT INFORMATION
  Report Type: 
  Country: None (occurrence: None)
  Receive Date: 20120628
  Receipt Date: 20120619
  Transmission Date: 20120825
  Serious: Yes (Hospitalization)
  Sender: FDA-Public Use
  Company Number: US-BAYER-2012-062372

PATIENT
  Age: 31 Year
  Sex: Female
  Weight: 121.3 kg

DRUGS (25)
  1. LORAZEPAM [Concomitant]
     Dosage: 0.5 MG 1 TABLET TWICE DAILY;1 MG EVERY 8 HOURS AS NEEDED
     Route: 048
     Dates: start: 20110207
  2. CYMBALTA [Concomitant]
     Dosage: 60 MG, DAILY
     Route: 048
     Dates: start: 20110207, end: 20110518
  3. FOLIC ACID [Concomitant]
     Dosage: UNK
     Dates: start: 20110207
  4. PEPCID [Concomitant]
     Indication: HYPERSENSITIVITY
     Dosage: 40 MG, IV
     Dates: start: 20110406
  5. LORAZEPAM [Concomitant]
     Dosage: 0.5 MG 1 TABLET TWICE DAILY;1 MG EVERY 8 HOURS AS NEEDED
     Route: 048
     Dates: start: 20110408
  6. DILAUDID [Concomitant]
     Dosage: 1 MG, IV
     Dates: start: 20110406
  7. BENADRYL [Concomitant]
     Indication: HYPERSENSITIVITY
     Dosage: 25 MG, 25 MG 2 TABLETS EVERY 4 HOURS
     Dates: start: 20110406
  8. YAZ [Suspect]
  9. YASMIN [Suspect]
  10. VALACYCLOVIR HYDROCHLORIDE [Concomitant]
     Dosage: 500 MG, 1 TABLET DAILY
     Route: 048
     Dates: start: 20110207
  11. METHOTREXATE [Concomitant]
     Dosage: 2.5 MG, 4 TABLETS WEEKLY
     Route: 048
     Dates: start: 20110207, end: 20110518
  12. MEDROL [Concomitant]
     Indication: HYPERSENSITIVITY
     Dosage: UNK
     Dates: start: 20110406
  13. VENOFER [Concomitant]
  14. REMICADE [Concomitant]
     Dosage: 100 MG, INTRAVENOUS SOLUTION RECONSTITUTED
     Dates: start: 20110207
  15. SOLU-MEDROL [Concomitant]
     Indication: HYPERSENSITIVITY
     Dosage: 125 MG, IV
     Dates: start: 20110406
  16. ATIVAN [Concomitant]
     Indication: HYPERSENSITIVITY
     Dosage: 1 MG, IV
     Dates: start: 20110406, end: 20110518
  17. PREDNISONE TAB [Concomitant]
     Indication: HYPERSENSITIVITY
     Dosage: 20 MG, SELF ADJUSTS AS NEEDED
     Route: 048
     Dates: start: 20110406
  18. VITAMIN D [Concomitant]
     Dosage: 2000 U
     Dates: start: 20110408, end: 20110518
  19. TOPAMAX [Concomitant]
     Dosage: 100 MG, HS
     Dates: start: 20110207, end: 20110518
  20. ZOFRAN [Concomitant]
     Dosage: 4 MG, IV
     Dates: start: 20110406
  21. SULFADIAZINE [Concomitant]
  22. TRAZODONE HCL [Concomitant]
     Dosage: 50 MG, HS
     Route: 048
     Dates: start: 20110207
  23. OXYCODONE AND ACETAMINOPHEN [Concomitant]
     Indication: PAIN
     Dosage: 5-325 MG 1 TABLET EVERY 6 HOURS AS NEEDED
     Route: 048
     Dates: start: 20110207
  24. FISH OIL [Concomitant]
     Dosage: 1000 MG, 1 CAPSULE DAILY
     Dates: start: 20110408, end: 20110518
  25. LIDODERM [Concomitant]
     Dosage: 5 %, APPLY AS DIRECTED
     Dates: start: 20110518

REACTIONS (2)
  - DEEP VEIN THROMBOSIS [None]
  - PULMONARY EMBOLISM [None]
